FAERS Safety Report 9798780 (Version 3)
Quarter: 2015Q3

REPORT INFORMATION
  Report Type: Spontaneous
  Country: US (occurrence: US)
  Receive Date: 20140106
  Receipt Date: 20150806
  Transmission Date: 20151125
  Serious: No
  Sender: FDA-Public Use
  Company Number: US-GILEAD-2010-0029994

PATIENT
  Age: 63 Year
  Sex: Female
  Weight: 62.6 kg

DRUGS (19)
  1. ZOCOR [Concomitant]
     Active Substance: SIMVASTATIN
  2. COREG [Concomitant]
     Active Substance: CARVEDILOL
  3. PRILOSEC [Concomitant]
     Active Substance: OMEPRAZOLE MAGNESIUM
  4. CREON DR [Concomitant]
  5. LASIX [Concomitant]
     Active Substance: FUROSEMIDE
  6. CALCIUM [Concomitant]
     Active Substance: CALCIUM
  7. FISH OIL [Concomitant]
     Active Substance: FISH OIL
  8. ALBUTEROL. [Concomitant]
     Active Substance: ALBUTEROL
  9. GLUCOTROL [Concomitant]
     Active Substance: GLIPIZIDE
  10. LEVOTHYROXIN [Concomitant]
     Active Substance: LEVOTHYROXINE
  11. OXYGEN. [Concomitant]
     Active Substance: OXYGEN
  12. ADVAIR HFA [Concomitant]
     Active Substance: FLUTICASONE PROPIONATE\SALMETEROL XINAFOATE
  13. ASPIRIN. [Concomitant]
     Active Substance: ASPIRIN
  14. TRICOR [Concomitant]
     Active Substance: FENOFIBRATE
  15. NITROGLYCERIN. [Concomitant]
     Active Substance: NITROGLYCERIN
  16. TESSALON [Concomitant]
     Active Substance: BENZONATATE
  17. LETAIRIS [Suspect]
     Active Substance: AMBRISENTAN
     Indication: PULMONARY ARTERIAL HYPERTENSION
     Route: 048
     Dates: start: 20100604
  18. IMDUR [Concomitant]
     Active Substance: ISOSORBIDE MONONITRATE
  19. MULTIVITAMIN [Concomitant]
     Active Substance: VITAMINS

REACTIONS (1)
  - Dyspnoea [Recovering/Resolving]
